FAERS Safety Report 14031220 (Version 3)
Quarter: 2017Q4

REPORT INFORMATION
  Report Type: Spontaneous
  Country: US (occurrence: US)
  Receive Date: 20171002
  Receipt Date: 20171027
  Transmission Date: 20180321
  Serious: Yes (Other)
  Sender: FDA-Public Use
  Company Number: US-009507513-1709USA014218

PATIENT
  Sex: Male

DRUGS (2)
  1. KEYTRUDA [Suspect]
     Active Substance: PEMBROLIZUMAB
     Indication: BILE DUCT CANCER
     Dosage: UNK
     Route: 041
  2. KEYTRUDA [Suspect]
     Active Substance: PEMBROLIZUMAB
     Indication: CHOLANGIOCARCINOMA

REACTIONS (3)
  - Malignant neoplasm progression [Unknown]
  - Product use in unapproved indication [Unknown]
  - Ascites [Not Recovered/Not Resolved]

NARRATIVE: CASE EVENT DATE: 201708
